FAERS Safety Report 4718006-1 (Version None)
Quarter: 2005Q3

REPORT INFORMATION
  Report Type: 
  Country: None (occurrence: None)
  Receive Date: 20050718
  Receipt Date: 20050217
  Transmission Date: 20060218
  Serious: No
  Sender: FDA-Public Use
  Company Number: 2005000520

PATIENT
  Age: 85 Year
  Sex: Female
  Weight: 77.1115 kg

DRUGS (2)
  1. TARCEVA [Suspect]
     Indication: NON-SMALL CELL LUNG CANCER
     Dosage: 150 MG (QD), ORAL;  150 (QOD), ORAL
     Route: 048
     Dates: start: 20050203
  2. TARCEVA [Suspect]
     Indication: NON-SMALL CELL LUNG CANCER
     Dosage: 150 MG (QD), ORAL;  150 (QOD), ORAL
     Route: 048
     Dates: start: 20050215

REACTIONS (8)
  - CONDITION AGGRAVATED [None]
  - COUGH [None]
  - DIARRHOEA [None]
  - DRY SKIN [None]
  - OCULAR HYPERAEMIA [None]
  - RASH [None]
  - STOMATITIS [None]
  - VERTIGO [None]
